FAERS Safety Report 5239687-2 (Version None)
Quarter: 2007Q1

REPORT INFORMATION
  Report Type: 
  Country: None (occurrence: None)
  Receive Date: 20070216
  Receipt Date: 20070207
  Transmission Date: 20070707
  Serious: Yes (Other)
  Sender: FDA-Public Use
  Company Number: JP-SANOFI-SYNTHELABO-A01200701610

PATIENT
  Age: 57 Year
  Sex: Male

DRUGS (4)
  1. LEUCOVORIN CALCIUM [Concomitant]
     Route: 042
     Dates: start: 20070202, end: 20070202
  2. FLUOROURACIL [Concomitant]
     Route: 040
     Dates: start: 20070202, end: 20070202
  3. FLUOROURACIL [Concomitant]
     Route: 042
     Dates: start: 20070202, end: 20070202
  4. OXALIPLATIN [Suspect]
     Route: 042
     Dates: start: 20070202, end: 20070202

REACTIONS (3)
  - ANAPHYLACTIC REACTION [None]
  - ENTEROCOLITIS [None]
  - MYOCARDIAL ISCHAEMIA [None]
